FAERS Safety Report 4714504-5 (Version None)
Quarter: 2005Q3

REPORT INFORMATION
  Report Type: 
  Country: None (occurrence: None)
  Receive Date: 20050705
  Receipt Date: 20050425
  Transmission Date: 20060218
  Serious: Yes (Other)
  Sender: FDA-Public Use
  Company Number: 2005-0008280

PATIENT
  Age: 47 Year
  Sex: Male
  Weight: 72.8023 kg

DRUGS (10)
  1. VIREAD [Suspect]
     Indication: HIV INFECTION
     Dosage: 300 MG, 1 IN 1 D, ORAL
     Route: 048
     Dates: start: 20040201, end: 20040927
  2. BACTRIM DS [Suspect]
     Indication: INFECTION PROPHYLAXIS
     Dosage: 1 DOSAGE FORMS, 1 IN 1 D, ORAL
     Route: 048
     Dates: start: 20030601, end: 20040901
  3. DIDANOSINE [Concomitant]
  4. ATAZANAVIR(ATAZANAVIR) [Concomitant]
  5. RITONAVIR(RITONAVIR) [Concomitant]
  6. KALETRA [Concomitant]
  7. ZITHROMAX [Concomitant]
  8. FLUCONAZOLE [Concomitant]
  9. CETRIZIN(CERATRIZINE PROPYLENGLYCOLATE SULFATE) [Concomitant]
  10. ACYCLOVIR(ACICLOVR) [Concomitant]

REACTIONS (2)
  - BLOOD CREATINE INCREASED [None]
  - FANCONI SYNDROME ACQUIRED [None]
